FAERS Safety Report 20177146 (Version 2)
Quarter: 2021Q4

REPORT INFORMATION
  Report Type: Report from Study
  Country: US (occurrence: US)
  Receive Date: 20211213
  Receipt Date: 20211227
  Transmission Date: 20220304
  Serious: Yes (Hospitalization, Other)
  Sender: FDA-Public Use
  Company Number: US-TAKEDA-US201934331

PATIENT
  Age: 6 Month
  Sex: Male
  Weight: 3.7 kg

DRUGS (17)
  1. TEDUGLUTIDE [Suspect]
     Active Substance: TEDUGLUTIDE
     Indication: Short-bowel syndrome
     Dosage: 0.54 MILLIGRAM
     Route: 065
     Dates: end: 20201215
  2. TEDUGLUTIDE [Suspect]
     Active Substance: TEDUGLUTIDE
     Indication: Short-bowel syndrome
     Dosage: 0.54 MILLIGRAM
     Route: 065
     Dates: end: 20201215
  3. TEDUGLUTIDE [Suspect]
     Active Substance: TEDUGLUTIDE
     Indication: Short-bowel syndrome
     Dosage: 0.54 MILLIGRAM
     Route: 065
     Dates: end: 20201215
  4. TEDUGLUTIDE [Suspect]
     Active Substance: TEDUGLUTIDE
     Indication: Short-bowel syndrome
     Dosage: 0.54 MILLIGRAM
     Route: 065
     Dates: end: 20201215
  5. TEDUGLUTIDE [Suspect]
     Active Substance: TEDUGLUTIDE
     Dosage: 0.73 MILLIGRAM
     Route: 065
  6. TEDUGLUTIDE [Suspect]
     Active Substance: TEDUGLUTIDE
     Dosage: 0.73 MILLIGRAM
     Route: 065
  7. TEDUGLUTIDE [Suspect]
     Active Substance: TEDUGLUTIDE
     Dosage: 0.73 MILLIGRAM
     Route: 065
  8. TEDUGLUTIDE [Suspect]
     Active Substance: TEDUGLUTIDE
     Dosage: 0.73 MILLIGRAM
     Route: 065
  9. TRIAMCINOLONE ACETONIDE [Concomitant]
     Active Substance: TRIAMCINOLONE ACETONIDE
     Indication: Excessive granulation tissue
     Route: 065
  10. ACETAMINOPHEN [Concomitant]
     Active Substance: ACETAMINOPHEN
     Indication: Pain
     Route: 065
  11. ACETAMINOPHEN [Concomitant]
     Active Substance: ACETAMINOPHEN
     Indication: Pyrexia
  12. LIDOCAINE [Concomitant]
     Active Substance: LIDOCAINE
     Indication: Pain
     Route: 065
  13. CEFTRIAXONE [Concomitant]
     Active Substance: CEFTRIAXONE
     Indication: Bacteraemia
     Route: 065
  14. PIPERACILLIN SODIUM\TAZOBACTAM SODIUM [Concomitant]
     Active Substance: PIPERACILLIN SODIUM\TAZOBACTAM SODIUM
     Indication: Sepsis
     Route: 065
  15. CEFEPIME [Concomitant]
     Active Substance: CEFEPIME HYDROCHLORIDE
     Indication: Device related infection
     Route: 065
  16. MICAFUNGIN [Concomitant]
     Active Substance: MICAFUNGIN
     Indication: Systemic candida
     Route: 065
  17. TRIAMCINOLONE [Concomitant]
     Active Substance: TRIAMCINOLONE
     Indication: Excessive granulation tissue
     Route: 065

REACTIONS (6)
  - Complication associated with device [Recovered/Resolved]
  - Device related sepsis [Recovered/Resolved]
  - Vascular device infection [Recovered/Resolved]
  - Urosepsis [Recovered/Resolved]
  - Urinary tract infection [Recovered/Resolved]
  - Enterococcal sepsis [Recovered/Resolved]

NARRATIVE: CASE EVENT DATE: 20161018
